FAERS Safety Report 7900126-1 (Version None)
Quarter: 2011Q4

REPORT INFORMATION
  Report Type: 
  Country: None (occurrence: None)
  Receive Date: 20111108
  Receipt Date: 20111102
  Transmission Date: 20120403
  Serious: No
  Sender: FDA-Public Use
  Company Number: US-BIOGENIDEC-2011BI036522

PATIENT
  Sex: Female

DRUGS (2)
  1. TYSABRI [Suspect]
     Indication: MULTIPLE SCLEROSIS
     Route: 042
     Dates: start: 20101208
  2. AVONEX [Concomitant]
     Indication: MULTIPLE SCLEROSIS
     Route: 030
     Dates: start: 20100802

REACTIONS (12)
  - MUSCULAR WEAKNESS [None]
  - ASTHENIA [None]
  - HYPOAESTHESIA [None]
  - PAIN [None]
  - FALL [None]
  - FATIGUE [None]
  - LOSS OF CONTROL OF LEGS [None]
  - MUSCULOSKELETAL PAIN [None]
  - MUSCLE SPASTICITY [None]
  - MOBILITY DECREASED [None]
  - CRYING [None]
  - MUSCLE SPASMS [None]
